FAERS Safety Report 24647296 (Version 1)
Quarter: 2024Q4

REPORT INFORMATION
  Report Type: Spontaneous
  Country: US (occurrence: None)
  Receive Date: 20241120
  Receipt Date: 20241120
  Transmission Date: 20250115
  Serious: Yes (Life-Threatening, Hospitalization, Other)
  Sender: Public
  Company Number: None

PATIENT
  Age: 73 Year
  Sex: Male
  Weight: 85.05 kg

DRUGS (7)
  1. BRILINTA [Suspect]
     Active Substance: TICAGRELOR
     Indication: Anticoagulant therapy
     Dosage: OTHER QUANTITY : 1 TABLET(S);?FREQUENCY : TWICE A DAY;?
     Route: 048
  2. PLAVIX [Suspect]
     Active Substance: CLOPIDOGREL BISULFATE
  3. ASPIRIN [Concomitant]
     Active Substance: ASPIRIN
  4. Brillante [Concomitant]
  5. COZAAR [Concomitant]
     Active Substance: LOSARTAN POTASSIUM
  6. OMEGA 3 [Concomitant]
     Active Substance: CAPSAICIN
  7. MAGNESIUM [Concomitant]
     Active Substance: MAGNESIUM

REACTIONS (7)
  - Blood pressure increased [None]
  - Head discomfort [None]
  - Sleep disorder [None]
  - Hangover [None]
  - Dyspnoea [None]
  - Choking [None]
  - Drug ineffective [None]

NARRATIVE: CASE EVENT DATE: 20240914
